FAERS Safety Report 16464981 (Version 1)
Quarter: 2019Q2

REPORT INFORMATION
  Report Type: Spontaneous
  Country: BR (occurrence: BR)
  Receive Date: 20190621
  Receipt Date: 20190621
  Transmission Date: 20190711
  Serious: Yes (Hospitalization, Other)
  Sender: FDA-Public Use
  Company Number: BR-ALLERGAN-1925651US

PATIENT
  Sex: Female

DRUGS (2)
  1. ATROPINA 1% [Suspect]
     Active Substance: ATROPINE
     Indication: SALIVARY HYPERSECRETION
  2. ATROPINA 0.5% [Suspect]
     Active Substance: ATROPINE SULFATE
     Indication: SALIVARY HYPERSECRETION

REACTIONS (3)
  - Off label use [Unknown]
  - Cerebrovascular accident [Unknown]
  - Coma [Not Recovered/Not Resolved]
